FAERS Safety Report 8499619-0 (Version None)
Quarter: 2012Q3

REPORT INFORMATION
  Report Type: 
  Country: None (occurrence: None)
  Receive Date: 20120710
  Receipt Date: 20120702
  Transmission Date: 20120928
  Serious: Yes (Other)
  Sender: FDA-Public Use
  Company Number: GB-ASTELLAS-2012EU004736

PATIENT
  Sex: Female

DRUGS (1)
  1. PROGRAF [Suspect]
     Dosage: UNK
     Route: 065
     Dates: start: 20070101

REACTIONS (6)
  - DYSPHAGIA [None]
  - PARALYSIS [None]
  - STRABISMUS [None]
  - SPEECH DISORDER [None]
  - RESPIRATORY DISORDER [None]
  - ASTHENIA [None]
